FAERS Safety Report 7360209-4 (Version None)
Quarter: 2011Q1

REPORT INFORMATION
  Report Type: 
  Country: None (occurrence: None)
  Receive Date: 20110318
  Receipt Date: 20110311
  Transmission Date: 20110831
  Serious: Yes (Death, Hospitalization, Other)
  Sender: FDA-Public Use
  Company Number: US-TEVA-271070USA

PATIENT
  Sex: Female

DRUGS (1)
  1. DEXTROPROPOXYPHENE HYDROCHLORIDE 65 MG CAPSULES [Suspect]

REACTIONS (2)
  - NEOPLASM MALIGNANT [None]
  - THROMBOSIS [None]
